FAERS Safety Report 7027962-0 (Version None)
Quarter: 2010Q4

REPORT INFORMATION
  Report Type: 
  Country: None (occurrence: None)
  Receive Date: 20101005
  Receipt Date: 20100927
  Transmission Date: 20110411
  Serious: Yes (Other)
  Sender: FDA-Public Use
  Company Number: US-US-EMD SERONO, INC.-7014514

PATIENT
  Sex: Female
  Weight: 102 kg

DRUGS (9)
  1. REBIF [Suspect]
     Indication: MULTIPLE SCLEROSIS
     Route: 058
     Dates: start: 20100812, end: 20100901
  2. LEXAPRO [Concomitant]
     Indication: DEPRESSION
     Dates: start: 20100224
  3. LEXAPRO [Concomitant]
     Indication: BIPOLAR DISORDER
  4. BYSTOLIC [Concomitant]
     Indication: PALPITATIONS
     Dates: start: 20090616
  5. SYNTHROID [Concomitant]
     Indication: HYPOTHYROIDISM
  6. ABILIFY [Concomitant]
     Indication: DEPRESSION
  7. ABILIFY [Concomitant]
     Indication: BIPOLAR DISORDER
  8. LAMICTAL [Concomitant]
     Indication: DEPRESSION
  9. LAMICTAL [Concomitant]
     Indication: BIPOLAR DISORDER

REACTIONS (4)
  - DEPRESSION [None]
  - FATIGUE [None]
  - NEUROPATHY PERIPHERAL [None]
  - SELF-INJURIOUS IDEATION [None]
